FAERS Safety Report 20096308 (Version 1)
Quarter: 2021Q4

REPORT INFORMATION
  Report Type: Spontaneous
  Country: US (occurrence: US)
  Receive Date: 20211122
  Receipt Date: 20211122
  Transmission Date: 20220303
  Serious: No
  Sender: FDA-Public Use
  Company Number: US-APOTEX-2021AP042473

PATIENT
  Sex: Male

DRUGS (1)
  1. FENTANYL TRANSDERMAL SYSTEM [Suspect]
     Active Substance: FENTANYL
     Indication: Product used for unknown indication
     Dosage: 100 MICROGRAM, ( 3 PATCHES IN EVERY 48 HOURS)
     Route: 065

REACTIONS (4)
  - Burning sensation [Unknown]
  - Product adhesion issue [Unknown]
  - Product physical issue [Unknown]
  - Withdrawal syndrome [Unknown]
